FAERS Safety Report 8888446 (Version 2)
Quarter: 2012Q4

REPORT INFORMATION
  Report Type: 
  Country: US (occurrence: US)
  Receive Date: 20121106
  Receipt Date: 20121130
  Transmission Date: 20130627
  Serious: Yes (Other)
  Sender: FDA-Public Use
  Company Number: PHEH2012US021062

PATIENT
  Sex: Male

DRUGS (2)
  1. SANDOSTATIN LAR [Suspect]
     Indication: POST GASTRIC SURGERY SYNDROME
     Dosage: UNK UKN, UNK
     Route: 030
     Dates: start: 1994
  2. OCTREOTIDE [Suspect]

REACTIONS (4)
  - Weight decreased [Not Recovered/Not Resolved]
  - Weight increased [Unknown]
  - Anaemia [Unknown]
  - Drug ineffective [Unknown]
